FAERS Safety Report 9776718 (Version 2)
Quarter: 2013Q4

REPORT INFORMATION
  Report Type: Spontaneous
  Country: US (occurrence: US)
  Receive Date: 20131220
  Receipt Date: 20131220
  Transmission Date: 20140711
  Serious: Yes (Hospitalization, Other)
  Sender: FDA-Public Use
  Company Number: US-ABBVIE-13P-163-1090775-00

PATIENT
  Age: 29 Year
  Sex: Female
  Weight: 69.8 kg

DRUGS (2)
  1. HUMIRA [Suspect]
     Indication: CROHN^S DISEASE
     Dates: start: 201110
  2. VITAMIN B12 [Concomitant]
     Indication: PRODUCT USED FOR UNKNOWN INDICATION
     Route: 048

REACTIONS (14)
  - Intestinal stenosis [Recovered/Resolved]
  - Mesenteric vascular insufficiency [Recovered/Resolved]
  - Intestinal perforation [Recovered/Resolved]
  - Abdominal infection [Recovered/Resolved]
  - Injection site erythema [Not Recovered/Not Resolved]
  - Injection site swelling [Not Recovered/Not Resolved]
  - Crohn^s disease [Unknown]
  - Anastomotic leak [Unknown]
  - Peritonitis [Unknown]
  - Drug ineffective [Unknown]
  - Anastomotic stenosis [Unknown]
  - Anastomotic leak [Unknown]
  - Sepsis [Unknown]
  - Intestinal anastomosis [Unknown]
